FAERS Safety Report 17810423 (Version 1)
Quarter: 2020Q2

REPORT INFORMATION
  Report Type: Spontaneous
  Country: CN (occurrence: CN)
  Receive Date: 20200520
  Receipt Date: 20200520
  Transmission Date: 20200714
  Serious: Yes (Other)
  Sender: FDA-Public Use
  Company Number: CN-BAXTER-2020BAX010338

PATIENT
  Age: 35 Year
  Sex: Female
  Weight: 50 kg

DRUGS (9)
  1. SODIUM CHLORIDE. [Suspect]
     Active Substance: SODIUM CHLORIDE
     Indication: MEDICATION DILUTION
     Dosage: INTRAPUMP INJECTION, CYCLOPHOSPHAMIDE 0.8 G + SODIUM CHLORIDE 50 ML (MICROPUMP)
     Route: 065
     Dates: start: 20200506, end: 20200506
  2. ENDOXAN [Suspect]
     Active Substance: CYCLOPHOSPHAMIDE
     Indication: BREAST CANCER FEMALE
     Dosage: INTRAPUMP INJECTION, CYCLOPHOSPHAMIDE 0.8 G + SODIUM CHLORIDE 50 ML (MICROPUMP)
     Route: 065
     Dates: start: 20200506, end: 20200506
  3. VILLET [TROPISETRON HYDROCHLORIDE] [Suspect]
     Active Substance: TROPISETRON HYDROCHLORIDE
     Indication: PROPHYLAXIS
     Dosage: VILLET 5 MG + SODIUM CHLORIDE 10 ML
     Route: 042
     Dates: start: 20200506, end: 20200506
  4. SODIUM CHLORIDE. [Suspect]
     Active Substance: SODIUM CHLORIDE
     Dosage: INTRAPUMP INJECTION, AIDASHENG 120 MG + SODIUM CHLORIDE 120 ML
     Route: 065
     Dates: start: 20200506, end: 20200506
  5. GLUCOSE [Suspect]
     Active Substance: DEXTROSE
     Indication: MEDICATION DILUTION
     Dosage: TIANQING GANMEI 150 MG + 5% GLUCOSE 250 ML
     Route: 041
     Dates: start: 20200506, end: 20200506
  6. AIDASHENG [Suspect]
     Active Substance: EPIRUBICIN HYDROCHLORIDE
     Indication: BREAST CANCER FEMALE
     Dosage: INTRAPUMP INJECTION, AIDASHENG 120 MG + SODIUM CHLORIDE 120 ML
     Route: 065
     Dates: start: 20200506, end: 20200506
  7. DEXAMETHASONE SODIUM PHOSPHATE. [Suspect]
     Active Substance: DEXAMETHASONE SODIUM PHOSPHATE
     Indication: PROPHYLAXIS
     Route: 042
     Dates: start: 20200506, end: 20200506
  8. TIANQING GANMEI [Suspect]
     Active Substance: MAGNESIUM ISOGLYCYRRHIZINATE
     Indication: PROPHYLAXIS
     Dosage: TIANQING GANMEI 150 MG + 5% GLUCOSE 250 ML
     Route: 041
     Dates: start: 20200506, end: 20200506
  9. SODIUM CHLORIDE. [Suspect]
     Active Substance: SODIUM CHLORIDE
     Dosage: VILLET 5 MG + SODIUM CHLORIDE 10 ML
     Route: 042
     Dates: start: 20200506, end: 20200506

REACTIONS (3)
  - Pruritus [Recovered/Resolved]
  - Rash rubelliform [Recovered/Resolved]
  - Lip swelling [Recovered/Resolved]

NARRATIVE: CASE EVENT DATE: 20200506
